FAERS Safety Report 4521874-X (Version None)
Quarter: 2004Q4

REPORT INFORMATION
  Report Type: 
  Country: None (occurrence: None)
  Receive Date: 20041207
  Receipt Date: 20041121
  Transmission Date: 20050328
  Serious: Yes (Death)
  Sender: FDA-Public Use
  Company Number: L04-USA-07822-01

PATIENT
  Age: 21 Year
  Sex: Female

DRUGS (1)
  1. CELEXA [Suspect]

REACTIONS (2)
  - COMPLETED SUICIDE [None]
  - SELF INJURIOUS BEHAVIOUR [None]
